FAERS Safety Report 19247738 (Version 2)
Quarter: 2021Q2

REPORT INFORMATION
  Report Type: Spontaneous
  Country: US (occurrence: US)
  Receive Date: 20210512
  Receipt Date: 20210524
  Transmission Date: 20210717
  Serious: Yes (Other)
  Sender: FDA-Public Use
  Company Number: US-SAOL THERAPEUTICS-2021SAO00166

PATIENT
  Sex: Male
  Weight: 34.01 kg

DRUGS (3)
  1. LIORESAL [Suspect]
     Active Substance: BACLOFEN
     Indication: CEREBRAL PALSY
     Dosage: 570 ?G, \DAY
     Route: 037
     Dates: end: 2021
  2. LIORESAL [Suspect]
     Active Substance: BACLOFEN
     Indication: MUSCLE SPASTICITY
     Dosage: UNK, ^MIN RATE^
     Route: 037
     Dates: start: 2021, end: 2021
  3. LIORESAL [Suspect]
     Active Substance: BACLOFEN
     Dosage: UNK, ^INCREASED DOSE^
     Route: 037
     Dates: start: 2021

REACTIONS (4)
  - Drug withdrawal syndrome [Recovered/Resolved]
  - Therapeutic product effect incomplete [Not Recovered/Not Resolved]
  - Complication associated with device [Not Recovered/Not Resolved]
  - Spinal fusion surgery [Recovered/Resolved]

NARRATIVE: CASE EVENT DATE: 2021
